FAERS Safety Report 7075285-6 (Version None)
Quarter: 2010Q4

REPORT INFORMATION
  Report Type: 
  Country: None (occurrence: None)
  Receive Date: 20101030
  Receipt Date: 20100621
  Transmission Date: 20110411
  Serious: No
  Sender: FDA-Public Use
  Company Number: US-WYE-H16147110

PATIENT
  Age: 41 Year
  Sex: Female

DRUGS (1)
  1. ALAVERT D-12 [Suspect]
     Dosage: UNKNOWN
     Route: 048

REACTIONS (1)
  - FEELING JITTERY [None]
